FAERS Safety Report 4417789-8 (Version None)
Quarter: 2004Q2

REPORT INFORMATION
  Report Type: 
  Country: None (occurrence: None)
  Receive Date: 20040621
  Receipt Date: 20040427
  Transmission Date: 20050107
  Serious: No
  Sender: FDA-Public Use
  Company Number: PHEH2004US04793

PATIENT
  Age: 65 Year
  Sex: Female

DRUGS (1)
  1. ZOMETA [Suspect]
     Indication: MULTIPLE MYELOMA
     Dosage: 4 MG EVERY MONTH, INTRAVENOUS
     Route: 042

REACTIONS (2)
  - ACTINOMYCOTIC SKIN INFECTION [None]
  - ORAL SOFT TISSUE DISORDER [None]
